FAERS Safety Report 8458871-8 (Version None)
Quarter: 2012Q2

REPORT INFORMATION
  Report Type: 
  Country: None (occurrence: None)
  Receive Date: 20120622
  Receipt Date: 20120619
  Transmission Date: 20120825
  Serious: Yes (Other)
  Sender: FDA-Public Use
  Company Number: US-ROCHE-1022386

PATIENT
  Sex: Female
  Weight: 40.86 kg

DRUGS (2)
  1. ACCUTANE [Suspect]
     Indication: ACNE
     Dates: start: 19970101, end: 19980601
  2. ACCUTANE [Suspect]
     Dates: start: 19970101, end: 20050101

REACTIONS (5)
  - DEPRESSION [None]
  - SUICIDAL IDEATION [None]
  - INFLAMMATORY BOWEL DISEASE [None]
  - COLITIS ULCERATIVE [None]
  - SELF INJURIOUS BEHAVIOUR [None]
